FAERS Safety Report 11149397 (Version 1)
Quarter: 2015Q2

REPORT INFORMATION
  Report Type: Spontaneous
  Country: US (occurrence: None)
  Receive Date: 20150528
  Receipt Date: 20150528
  Transmission Date: 20150821
  Serious: No
  Sender: FDA-Public Use
  Company Number: None

PATIENT
  Age: 59 Year
  Sex: Female
  Weight: 61.24 kg

DRUGS (1)
  1. HARVONI [Suspect]
     Active Substance: LEDIPASVIR\SOFOSBUVIR
     Indication: HEPATITIS C
     Route: 048

REACTIONS (6)
  - Confusional state [None]
  - Malaise [None]
  - Memory impairment [None]
  - Fatigue [None]
  - Presyncope [None]
  - Dizziness [None]

NARRATIVE: CASE EVENT DATE: 20150522
